FAERS Safety Report 5453712-5 (Version None)
Quarter: 2007Q3

REPORT INFORMATION
  Report Type: 
  Country: None (occurrence: None)
  Receive Date: 20070917
  Receipt Date: 20070907
  Transmission Date: 20080115
  Serious: Yes (Other)
  Sender: FDA-Public Use
  Company Number: CA-JNJFOC-20070505967

PATIENT
  Sex: Female

DRUGS (3)
  1. REMICADE [Suspect]
     Route: 042
  2. REMICADE [Suspect]
     Indication: RHEUMATOID ARTHRITIS
     Route: 042
  3. BENADRYL [Concomitant]
     Route: 042

REACTIONS (6)
  - BLOOD PRESSURE INCREASED [None]
  - HYPERHIDROSIS [None]
  - INFUSION RELATED REACTION [None]
  - NAUSEA [None]
  - TACHYCARDIA [None]
  - VOMITING [None]
